FAERS Safety Report 23626049 (Version 2)
Quarter: 2024Q1

REPORT INFORMATION
  Report Type: Spontaneous
  Country: TR (occurrence: TR)
  Receive Date: 20240313
  Receipt Date: 20240321
  Transmission Date: 20240409
  Serious: Yes (Death, Hospitalization, Other)
  Sender: FDA-Public Use
  Company Number: TR-GILEAD-2024-0664912

PATIENT
  Age: 66 Year
  Sex: Male

DRUGS (1)
  1. AMPHOTERICIN B [Suspect]
     Active Substance: AMPHOTERICIN B
     Indication: Mucormycosis
     Route: 042

REACTIONS (4)
  - Death [Fatal]
  - Pneumonia aspiration [Unknown]
  - Hepatic failure [Unknown]
  - Hepatic encephalopathy [Unknown]
